FAERS Safety Report 14957220 (Version 2)
Quarter: 2018Q2

REPORT INFORMATION
  Report Type: Report from Study
  Country: GB (occurrence: GB)
  Receive Date: 20180531
  Receipt Date: 20180619
  Transmission Date: 20180711
  Serious: Yes (Hospitalization)
  Sender: FDA-Public Use
  Company Number: GB-ROCHE-2131235

PATIENT
  Age: 71 Year
  Sex: Female
  Weight: 71 kg

DRUGS (5)
  1. NITROFURANTOIN. [Concomitant]
     Active Substance: NITROFURANTOIN
     Indication: BURNING SENSATION
     Route: 048
     Dates: start: 20180522, end: 20180525
  2. FLUCONAZOLE. [Concomitant]
     Active Substance: FLUCONAZOLE
     Indication: BURNING SENSATION
     Route: 048
     Dates: start: 20180520, end: 20180524
  3. DOMPERIDONE [Concomitant]
     Active Substance: DOMPERIDONE
     Indication: NAUSEA
     Route: 048
     Dates: start: 20180301, end: 20180501
  4. ATEZOLIZUMAB. [Suspect]
     Active Substance: ATEZOLIZUMAB
     Indication: OVARIAN CANCER
     Dosage: DATE OF MOST RECENT DOSE OF ATEZOLIZUMAB PRIOR TO AE ONSET 10/MAY/2018
     Route: 042
     Dates: start: 20180419, end: 20180531
  5. RUCAPARIB [Suspect]
     Active Substance: RUCAPARIB
     Indication: OVARIAN CANCER
     Dosage: DATE OF MOST RECENT DOSE (600) OF RUCAPARIB PRIOR TO AE ONSET 25/MAY/2018
     Route: 048
     Dates: start: 20180301

REACTIONS (1)
  - Neutropenic sepsis [Recovered/Resolved]

NARRATIVE: CASE EVENT DATE: 20180525
